FAERS Safety Report 13239731 (Version 1)
Quarter: 2017Q1

REPORT INFORMATION
  Report Type: Report from Study
  Country: US (occurrence: US)
  Receive Date: 20170216
  Receipt Date: 20170216
  Transmission Date: 20170428
  Serious: Yes (Death, Hospitalization, Other)
  Sender: FDA-Public Use
  Company Number: US-JNJFOC-20170207718

PATIENT
  Age: 74 Year
  Sex: Male

DRUGS (1)
  1. IMBRUVICA [Suspect]
     Active Substance: IBRUTINIB
     Indication: WALDENSTROM^S MACROGLOBULINAEMIA
     Route: 048
     Dates: start: 20140624, end: 2017

REACTIONS (5)
  - Pulmonary mass [Unknown]
  - Medical device site infection [Unknown]
  - Death [Fatal]
  - Hepatic lesion [Unknown]
  - Cardiac failure [Unknown]

NARRATIVE: CASE EVENT DATE: 201701
